FAERS Safety Report 5296386-9 (Version None)
Quarter: 2007Q2

REPORT INFORMATION
  Report Type: 
  Country: None (occurrence: None)
  Receive Date: 20070413
  Receipt Date: 20070403
  Transmission Date: 20071010
  Serious: Yes (Other)
  Sender: FDA-Public Use
  Company Number: GB-ROCHE-485729

PATIENT
  Age: 40 Year
  Sex: Female
  Weight: 61 kg

DRUGS (5)
  1. FUZEON [Suspect]
     Indication: HIV INFECTION
     Route: 058
     Dates: start: 20061126, end: 20061209
  2. FUZEON [Suspect]
     Route: 058
     Dates: start: 20070202, end: 20070202
  3. TRUVADA [Concomitant]
     Indication: HIV INFECTION
     Route: 048
     Dates: start: 20061126
  4. TELZIR [Concomitant]
     Indication: DRUG USE FOR UNKNOWN INDICATION
     Route: 065
     Dates: start: 20070202, end: 20070202
  5. KALETRA [Concomitant]
     Indication: HIV INFECTION
     Route: 048
     Dates: start: 20061126

REACTIONS (3)
  - ARTHRALGIA [None]
  - PYREXIA [None]
  - RASH ERYTHEMATOUS [None]
